FAERS Safety Report 5481758-X (Version None)
Quarter: 2007Q4

REPORT INFORMATION
  Report Type: 
  Country: None (occurrence: None)
  Receive Date: 20071010
  Receipt Date: 20070815
  Transmission Date: 20080405
  Serious: Yes (Death, Other)
  Sender: FDA-Public Use
  Company Number: US-PURDUE-USA_2007_0029013

PATIENT
  Age: 63 Year
  Sex: Female
  Weight: 50 kg

DRUGS (3)
  1. OXYCONTIN [Suspect]
     Indication: PAIN
     Dosage: 20 MG, Q12H
     Dates: start: 19990516, end: 19990530
  2. MOTRIN [Concomitant]
     Dosage: 800 MG, Q8H
  3. SENOKOT [Concomitant]
     Dosage: 1 TABLET, Q12H

REACTIONS (3)
  - INTESTINAL FUNCTIONAL DISORDER [None]
  - LARGE INTESTINAL OBSTRUCTION [None]
  - NERVOUS SYSTEM DISORDER [None]
